FAERS Safety Report 9269844 (Version 2)
Quarter: 2013Q3

REPORT INFORMATION
  Report Type: Spontaneous
  Country: US (occurrence: US)
  Receive Date: 20130503
  Receipt Date: 20130723
  Transmission Date: 20140515
  Serious: Yes (Hospitalization, Other)
  Sender: FDA-Public Use
  Company Number: US-B.I. PHARMACEUTICALS,INC./RIDGEFIELD-2013-BI-12008BP

PATIENT
  Age: 91 Year
  Sex: Female
  Weight: 63.5 kg

DRUGS (9)
  1. PRADAXA [Suspect]
     Indication: ANTICOAGULANT THERAPY
     Dosage: 300 MG
     Route: 048
     Dates: start: 20110222, end: 20110527
  2. PRADAXA [Suspect]
     Indication: ATRIAL FIBRILLATION
  3. BENAZEPRIL [Concomitant]
     Dosage: 10 MG
     Route: 048
  4. ACETAMINOPHEN-DIPHENHYDRAMINE [Concomitant]
     Route: 048
  5. ASPIRIN [Concomitant]
     Dosage: 81 MG
     Route: 048
  6. ATROPINE-DIPHENOXYLATE [Concomitant]
     Route: 048
  7. FUROSEMIDE [Concomitant]
     Dosage: 20 MG
     Route: 048
  8. POTASSIUM CHLORIDE [Concomitant]
     Dosage: 10 MEQ
     Route: 048
  9. TRIAMCINOLONE [Concomitant]
     Route: 061

REACTIONS (2)
  - Gastrointestinal haemorrhage [Recovered/Resolved]
  - Coagulopathy [Unknown]
